FAERS Safety Report 7131310-5 (Version None)
Quarter: 2010Q4

REPORT INFORMATION
  Report Type: 
  Country: None (occurrence: None)
  Receive Date: 20101124
  Receipt Date: 20101124
  Transmission Date: 20110411
  Serious: Yes (Death)
  Sender: FDA-Public Use
  Company Number: None

PATIENT
  Age: 89 Year
  Sex: Male
  Weight: 34.0198 kg

DRUGS (2)
  1. METHOTREXATE [Suspect]
     Indication: PSORIASIS
     Dosage: 7.5 MG QWEEK PO
     Route: 048
  2. METHOTREXATE [Suspect]
     Indication: PSORIASIS
     Dosage: 5 MG ONCE IM
     Route: 030
     Dates: start: 20101002, end: 20101002

REACTIONS (7)
  - ANAEMIA [None]
  - ERYTHEMA MULTIFORME [None]
  - HEPATIC ENZYME INCREASED [None]
  - LEUKOPENIA [None]
  - RASH [None]
  - STEVENS-JOHNSON SYNDROME [None]
  - THROMBOCYTOPENIA [None]
